FAERS Safety Report 23769131 (Version 1)
Quarter: 2024Q2

REPORT INFORMATION
  Report Type: Spontaneous
  Country: US (occurrence: None)
  Receive Date: 20240421
  Receipt Date: 20240421
  Transmission Date: 20240715
  Serious: Yes (Hospitalization)
  Sender: FDA-Public Use
  Company Number: None

PATIENT
  Age: 70 Year
  Sex: Male
  Weight: 89 kg

DRUGS (2)
  1. APIXABAN [Suspect]
     Active Substance: APIXABAN
     Indication: Deep vein thrombosis
     Dosage: FREQUENCY : TWICE A DAY;?
     Route: 048
     Dates: start: 20230407
  2. NAPROXEN SODIUM [Suspect]
     Active Substance: NAPROXEN\NAPROXEN SODIUM
     Indication: Atrial fibrillation
     Dates: start: 20230527, end: 20230528

REACTIONS (6)
  - Anaemia [None]
  - Haemorrhage [None]
  - Dyspnoea exertional [None]
  - Melaena [None]
  - Gastrointestinal disorder [None]
  - Duodenal ulcer [None]

NARRATIVE: CASE EVENT DATE: 20230604
